FAERS Safety Report 8906187 (Version 1)
Quarter: 2012Q4

REPORT INFORMATION
  Report Type: Spontaneous
  Country: US (occurrence: None)
  Receive Date: 20121109
  Receipt Date: 20121109
  Transmission Date: 20130627
  Serious: Yes (Other)
  Sender: FDA-Public Use
  Company Number: None

PATIENT
  Sex: Female

DRUGS (2)
  1. AFINITOR 2.5 MG NOVARTIS [Suspect]
     Dosage: 2.5mg 2 PO QD PO
     Route: 048
     Dates: start: 20120629, end: 201210
  2. AROMASIN [Concomitant]

REACTIONS (2)
  - Stomatitis [None]
  - Throat lesion [None]
